FAERS Safety Report 8199792-8 (Version None)
Quarter: 2012Q1

REPORT INFORMATION
  Report Type: 
  Country: None (occurrence: None)
  Receive Date: 20120312
  Receipt Date: 20120301
  Transmission Date: 20120608
  Serious: Yes (Death, Hospitalization)
  Sender: FDA-Public Use
  Company Number: US-BIOGENIDEC-2012BI006437

PATIENT
  Age: 55 Year
  Sex: Male
  Weight: 99 kg

DRUGS (23)
  1. LEVETIRACETAM [Concomitant]
     Route: 048
     Dates: start: 20111031
  2. FIBERCON [Concomitant]
     Route: 048
     Dates: start: 20060629
  3. DYAZIDE [Concomitant]
     Route: 048
  4. LEXAPRO [Concomitant]
     Route: 048
     Dates: start: 20110527
  5. CRESTOR [Concomitant]
     Route: 048
  6. LIPITOR [Concomitant]
     Route: 048
     Dates: start: 20091205
  7. HYDROCODONE BITARTRATE AND ACETAMINOPHEN [Concomitant]
     Route: 048
  8. NIACIN [Concomitant]
     Route: 048
  9. DYAZIDE [Concomitant]
     Route: 048
  10. VITAMIN D [Concomitant]
     Route: 048
     Dates: start: 20090811
  11. LYRICA [Concomitant]
     Route: 048
     Dates: start: 20111031
  12. COUMADIN [Concomitant]
     Indication: ANTICOAGULANT THERAPY
     Route: 048
     Dates: start: 20101001
  13. EMLA [Concomitant]
     Route: 061
     Dates: start: 20100701
  14. FISH OIL [Concomitant]
     Route: 048
     Dates: start: 20100325
  15. LAMICTAL [Concomitant]
     Route: 048
  16. TYSABRI [Suspect]
     Indication: MULTIPLE SCLEROSIS
     Route: 042
     Dates: start: 20070411
  17. ALPRAZOLAM [Concomitant]
     Route: 048
     Dates: start: 20100520
  18. ASPIRIN [Concomitant]
     Route: 048
     Dates: start: 20111230
  19. METOPROLOL SUCCINATE [Concomitant]
     Route: 048
     Dates: start: 20091205
  20. HYDROCODONE BITARTRATE AND ACETAMINOPHEN [Concomitant]
     Route: 048
     Dates: start: 20101201
  21. MULTI-VITAMINS [Concomitant]
     Dates: start: 20080429
  22. TENORMIN [Concomitant]
     Route: 048
  23. INDOCIN [Concomitant]
     Route: 048

REACTIONS (2)
  - MULTI-ORGAN FAILURE [None]
  - OVERDOSE [None]
